FAERS Safety Report 15385465 (Version 1)
Quarter: 2018Q3

REPORT INFORMATION
  Report Type: Spontaneous
  Country: US (occurrence: US)
  Receive Date: 20180907
  Receipt Date: 20180907
  Transmission Date: 20181010
  Serious: Yes (Other)
  Sender: FDA-Public Use
  Company Number: None

PATIENT
  Sex: Female

DRUGS (1)
  1. SUN BUM SUNSCREEN LIP BALM BROAD SPECTRUM SPF 30 MANGO [Suspect]
     Active Substance: AVOBENZONE\HOMOSALATE\OCTINOXATE\OCTISALATE
     Dosage: ?          QUANTITY:1 1;?
     Route: 061

REACTIONS (3)
  - Pharyngeal oedema [None]
  - Application site swelling [None]
  - Lip swelling [None]

NARRATIVE: CASE EVENT DATE: 20180902
